FAERS Safety Report 9146484 (Version 1)
Quarter: 2013Q1

REPORT INFORMATION
  Report Type: Spontaneous
  Country: US (occurrence: US)
  Receive Date: 20130307
  Receipt Date: 20130307
  Transmission Date: 20140127
  Serious: No
  Sender: FDA-Public Use
  Company Number: US-GLAXOSMITHKLINE-A0968405A

PATIENT
  Sex: Female

DRUGS (7)
  1. REQUIP [Suspect]
     Indication: RESTLESS LEGS SYNDROME
     Dosage: 2MG PER DAY
     Route: 048
     Dates: start: 2010, end: 20120301
  2. ADVAIR [Concomitant]
  3. DETROL [Concomitant]
  4. METOPROLOL TARTRATE [Concomitant]
  5. PRAVASTATIN [Concomitant]
  6. VENTOLIN HFA [Concomitant]
  7. WARFARIN [Concomitant]

REACTIONS (1)
  - Nausea [Unknown]
